FAERS Safety Report 8181013-3 (Version None)
Quarter: 2012Q1

REPORT INFORMATION
  Report Type: 
  Country: None (occurrence: None)
  Receive Date: 20120302
  Receipt Date: 20120223
  Transmission Date: 20120608
  Serious: Yes (Hospitalization)
  Sender: FDA-Public Use
  Company Number: FR-MPIJNJ-2012-01378

PATIENT

DRUGS (9)
  1. BACTRIM [Concomitant]
     Indication: PROPHYLAXIS
     Dosage: UNK
     Route: 048
     Dates: start: 20120119
  2. INNOHEP [Concomitant]
     Indication: PROPHYLAXIS
     Dosage: UNK
     Dates: start: 20120119
  3. ZELITREX                           /01269701/ [Concomitant]
     Indication: PROPHYLAXIS
     Dosage: UNK
     Dates: start: 20120119
  4. CLAMOXYL                           /00249601/ [Concomitant]
     Indication: PROPHYLAXIS
     Dosage: 2 G, UNK
     Dates: start: 20120123
  5. DURAGESIC-100 [Concomitant]
     Indication: PAIN
     Dosage: 25 UG, UNK
     Dates: start: 20120119
  6. REVLIMID [Suspect]
     Indication: MULTIPLE MYELOMA
     Dosage: UNK
     Route: 065
     Dates: start: 20120119, end: 20120220
  7. DEXAMETHASONE [Suspect]
     Indication: MULTIPLE MYELOMA
     Dosage: 20 MG, UNK
     Route: 065
     Dates: start: 20120119, end: 20120220
  8. VELCADE [Suspect]
     Indication: MULTIPLE MYELOMA
     Dosage: 2.353 MG, CYCLIC
     Route: 065
     Dates: start: 20120119, end: 20120220
  9. OXYCODONE HCL [Concomitant]
     Indication: PAIN
     Dosage: 10 MG, UNK
     Route: 048
     Dates: start: 20120119

REACTIONS (1)
  - LUNG DISORDER [None]
